FAERS Safety Report 10333479 (Version 2)
Quarter: 2014Q3

REPORT INFORMATION
  Report Type: Spontaneous
  Country: US (occurrence: US)
  Receive Date: 20140722
  Receipt Date: 20140722
  Transmission Date: 20150326
  Serious: Yes (Other)
  Sender: FDA-Public Use
  Company Number: US-MERCK-1407USA007019

PATIENT
  Age: 71 Year
  Sex: Female
  Weight: 86.17 kg

DRUGS (6)
  1. ASPIRIN. [Concomitant]
     Active Substance: ASPIRIN
     Dosage: 1.5 YEARS
     Dates: start: 201109
  2. METFORMIN [Concomitant]
     Active Substance: METFORMIN HYDROCHLORIDE
     Dosage: YEARS
  3. KRILL OIL [Concomitant]
     Active Substance: DIETARY SUPPLEMENT
     Dosage: LAST SPRING
     Dates: start: 201203
  4. VITAMINS (UNSPECIFIED) [Concomitant]
     Active Substance: VITAMINS
     Dosage: 2 YEARS
     Dates: start: 2011
  5. LEVOTHYROXINE SODIUM. [Concomitant]
     Active Substance: LEVOTHYROXINE SODIUM
     Dosage: 33 YEARS
     Dates: start: 1980
  6. JANUVIA [Suspect]
     Active Substance: SITAGLIPTIN PHOSPHATE
     Indication: DIABETES MELLITUS
     Dosage: 1 TABLET, QD
     Route: 048
     Dates: start: 20080101, end: 20130129

REACTIONS (3)
  - Insomnia [Recovering/Resolving]
  - Vitamin B12 decreased [Recovering/Resolving]
  - Palpitations [Recovering/Resolving]

NARRATIVE: CASE EVENT DATE: 20121015
